FAERS Safety Report 13590751 (Version 1)
Quarter: 2017Q2

REPORT INFORMATION
  Report Type: Spontaneous
  Country: US (occurrence: US)
  Receive Date: 20170527
  Receipt Date: 20170527
  Transmission Date: 20170830
  Serious: No
  Sender: FDA-Public Use
  Company Number: None

PATIENT
  Age: 56 Year
  Sex: Female

DRUGS (1)
  1. TASIGNA [Suspect]
     Active Substance: NILOTINIB
     Dosage: 2 DOSES 300MG BID ORAL
     Route: 048
     Dates: start: 20170526

REACTIONS (7)
  - Palpitations [None]
  - Dizziness [None]
  - Chest discomfort [None]
  - Flushing [None]
  - Pharyngeal oedema [None]
  - Insomnia [None]
  - Fall [None]

NARRATIVE: CASE EVENT DATE: 20170526
